FAERS Safety Report 8782742 (Version 1)
Quarter: 2012Q4

REPORT INFORMATION
  Report Type: Report from Study
  Country: US (occurrence: US)
  Receive Date: 20120913
  Receipt Date: 20120913
  Transmission Date: 20130627
  Serious: No
  Sender: FDA-Public Use
  Company Number: US-VERTEX PHARMACEUTICAL INC.-AE-2012-010070

PATIENT
  Age: 47 Year
  Sex: Male
  Weight: 99 kg

DRUGS (4)
  1. INCIVEK [Suspect]
     Indication: HEPATITIS C
     Route: 048
  2. PEGASYS [Concomitant]
     Indication: HEPATITIS C
     Route: 058
  3. RIBAPAK PAK [Concomitant]
     Indication: HEPATITIS C
     Route: 048
  4. XANAX [Concomitant]
     Route: 048

REACTIONS (1)
  - Chest pain [Unknown]
